FAERS Safety Report 6771558-2 (Version None)
Quarter: 2010Q2

REPORT INFORMATION
  Report Type: 
  Country: None (occurrence: None)
  Receive Date: 20100616
  Receipt Date: 20100607
  Transmission Date: 20101027
  Serious: Yes (Hospitalization)
  Sender: FDA-Public Use
  Company Number: DE-ASTRAZENECA-2010SE26724

PATIENT
  Age: 20 Year

DRUGS (5)
  1. SEROQUEL [Suspect]
     Indication: POST-TRAUMATIC STRESS DISORDER
     Route: 048
     Dates: start: 20100315, end: 20100315
  2. SEROQUEL [Suspect]
     Route: 048
     Dates: start: 20100316, end: 20100316
  3. SEROQUEL [Suspect]
     Route: 048
     Dates: start: 20100317, end: 20100317
  4. CITALOPRAM HYDROBROMIDE [Suspect]
     Route: 048
     Dates: start: 20100314
  5. REMERGIL [Suspect]
     Route: 048
     Dates: start: 20100315

REACTIONS (1)
  - FALL [None]
